FAERS Safety Report 15021577 (Version 1)
Quarter: 2018Q2

REPORT INFORMATION
  Report Type: Spontaneous
  Country: ES (occurrence: ES)
  Receive Date: 20180618
  Receipt Date: 20180618
  Transmission Date: 20180711
  Serious: Yes (Other)
  Sender: FDA-Public Use
  Company Number: ES-CORDEN PHARMA LATINA S.P.A.-ES-2018COR000043

PATIENT

DRUGS (9)
  1. CYCLOPHOSPHAMIDE ANHYDROUS. [Suspect]
     Active Substance: CYCLOPHOSPHAMIDE ANHYDROUS
     Indication: EXTRA-OSSEOUS EWING^S SARCOMA
     Dosage: 1500 MG/M2, DAY1 (EVERY 3WKS X 8 CYCLES)
     Route: 042
     Dates: start: 200910
  2. VINCRISTINE [Suspect]
     Active Substance: VINCRISTINE
     Indication: EXTRA-OSSEOUS EWING^S SARCOMA
     Dosage: 1.5 MG/M2, DAY 1
     Route: 042
     Dates: start: 200904, end: 2009
  3. DOXORUBICIN [Suspect]
     Active Substance: DOXORUBICIN
     Indication: EXTRA-OSSEOUS EWING^S SARCOMA
     Dosage: 20 MG/M2, DAYS 1-3
     Route: 042
     Dates: start: 200904
  4. IRINOTECAN                         /01280202/ [Suspect]
     Active Substance: IRINOTECAN
     Indication: EXTRA-OSSEOUS EWING^S SARCOMA
     Dosage: 20 MG/M2, DAYS 1-5, 8-13
     Route: 042
     Dates: start: 201004
  5. VINCRISTINE [Suspect]
     Active Substance: VINCRISTINE
     Dosage: 1.5 MG/M2, DAY 1
     Route: 042
     Dates: start: 200910
  6. IFOSFAMIDE. [Suspect]
     Active Substance: IFOSFAMIDE
     Indication: EXTRA-OSSEOUS EWING^S SARCOMA
     Dosage: 3000 MG/M2, DAYS 1-3
     Route: 042
     Dates: start: 200904
  7. TEMOZOLOMIDE ACCORD [Suspect]
     Active Substance: TEMOZOLOMIDE
     Indication: EXTRA-OSSEOUS EWING^S SARCOMA
     Dosage: 100 MG/M2, DAYS 1-21 (5 CYCLES)
     Route: 048
     Dates: start: 201004
  8. BEVACIZUMAB. [Suspect]
     Active Substance: BEVACIZUMAB
     Indication: EXTRA-OSSEOUS EWING^S SARCOMA
     Dosage: 350 MG/M2, DAY 1 (EVERY 21 DAYS X 5 CYCLES)
     Route: 042
     Dates: start: 201004
  9. ETOPOSIDE. [Suspect]
     Active Substance: ETOPOSIDE
     Indication: EXTRA-OSSEOUS EWING^S SARCOMA
     Dosage: 150 MG/M2, DAYS 1-3(EVERY 3 WKS, 6 CYCLES)
     Route: 042
     Dates: start: 200904

REACTIONS (1)
  - Blood stem cell harvest failure [Unknown]
